FAERS Safety Report 18799256 (Version 3)
Quarter: 2021Q1

REPORT INFORMATION
  Report Type: Report from Study
  Country: CN (occurrence: CN)
  Receive Date: 20210128
  Receipt Date: 20210219
  Transmission Date: 20210419
  Serious: No
  Sender: FDA-Public Use
  Company Number: CN-ASTRAZENECA-2021A012014

PATIENT
  Age: 55 Year
  Sex: Male
  Weight: 65 kg

DRUGS (2)
  1. OSIMERTINIB MESYLATE. [Suspect]
     Active Substance: OSIMERTINIB MESYLATE
     Indication: NON-SMALL CELL LUNG CANCER
     Route: 048
  2. OSIMERTINIB MESYLATE. [Suspect]
     Active Substance: OSIMERTINIB MESYLATE
     Indication: NON-SMALL CELL LUNG CANCER
     Dosage: THE PATIENT STOPPED TAKING THE DRUG FOR A FEW DAYS
     Route: 048

REACTIONS (6)
  - Discomfort [Unknown]
  - Abdominal distension [Unknown]
  - General physical condition abnormal [Unknown]
  - Hypophagia [Unknown]
  - Fatigue [Unknown]
  - Mass [Not Recovered/Not Resolved]

NARRATIVE: CASE EVENT DATE: 20210118
